FAERS Safety Report 24231905 (Version 1)
Quarter: 2024Q3

REPORT INFORMATION
  Report Type: Spontaneous
  Country: GB (occurrence: GB)
  Receive Date: 20240821
  Receipt Date: 20240821
  Transmission Date: 20241017
  Serious: Yes (Other)
  Sender: MYLAN
  Company Number: GB-MHRA-TPP25240340C17459774YC1723736655835

PATIENT
  Age: 82 Year
  Sex: Male
  Weight: 74 kg

DRUGS (17)
  1. PREGABALIN [Suspect]
     Active Substance: PREGABALIN
     Indication: Ill-defined disorder
     Dosage: 25 MILLIGRAM
     Route: 065
     Dates: start: 20240805
  2. QUETIAPINE [Concomitant]
     Active Substance: QUETIAPINE
     Indication: Ill-defined disorder
     Dosage: 1 DOSAGE FORM (1 TABLET)
     Route: 065
     Dates: start: 20240620, end: 20240717
  3. POLYETHYLENE GLYCOLS [Concomitant]
     Active Substance: POLYETHYLENE GLYCOLS
     Indication: Ill-defined disorder
     Dosage: UNK, (1-2 SACHET)
     Route: 065
     Dates: start: 20240531, end: 20240620
  4. MIRTAZAPINE [Concomitant]
     Active Substance: MIRTAZAPINE
     Indication: Ill-defined disorder
     Dosage: 1 DOSAGE FORM (1 TABLET)
     Route: 065
     Dates: start: 20230810
  5. DIAZEPAM [Concomitant]
     Active Substance: DIAZEPAM
     Indication: Ill-defined disorder
     Dosage: 1 DOSAGE FORM, (1 TABLET)
     Route: 065
     Dates: start: 20240717
  6. OLANZAPINE [Concomitant]
     Active Substance: OLANZAPINE
     Indication: Ill-defined disorder
     Dosage: 1 DOSAGE FORM (1 TABLET)
     Route: 065
     Dates: start: 20240729, end: 20240802
  7. BLEPHACLEAN [Concomitant]
     Indication: Ill-defined disorder
     Dosage: UNK, (1 APPLICATION(S) UNCHECKED UNITS)
     Route: 065
     Dates: start: 20240809
  8. ASPIRIN [Concomitant]
     Active Substance: ASPIRIN
     Indication: Ill-defined disorder
     Dosage: 1 DOSAGE FORM, QD (TAKE ONE DAILY)
     Route: 065
     Dates: start: 20230809
  9. GATALIN [Concomitant]
     Indication: Ill-defined disorder
     Dosage: 1 DOSAGE FORM, QD (TAKE ONE DAILY)
     Route: 065
     Dates: start: 20230809
  10. NITROGLYCERIN [Concomitant]
     Active Substance: NITROGLYCERIN
     Indication: Ill-defined disorder
     Dosage: UNK, (TREATMENT OR PROPHYLAXIS OF. CHEST PAIN(ANGINA)...)
     Route: 065
     Dates: start: 20230809
  11. NITROGLYCERIN [Concomitant]
     Active Substance: NITROGLYCERIN
     Indication: Prophylaxis
  12. HYLO TEAR [Concomitant]
     Indication: Ill-defined disorder
     Dosage: UNK, (USE TO BE TAKEN FOUR TIMES DAILY WHEN REQUIRED ...)
     Route: 065
     Dates: start: 20230809
  13. ISOSORBIDE MONONITRATE [Concomitant]
     Active Substance: ISOSORBIDE MONONITRATE
     Indication: Ill-defined disorder
     Dosage: 1 DOSAGE FORM, BID (TAKE ONE AT 8AM AND ONE AT 3PM TO HELP CONTROL ...)
     Route: 065
     Dates: start: 20230809
  14. SIMVASTATIN [Concomitant]
     Active Substance: SIMVASTATIN
     Indication: Ill-defined disorder
     Dosage: UNK, (TAKE ONE AT NIGHT TO LOWER CHOLESTEROL. AVOID G...)
     Route: 065
     Dates: start: 20230809
  15. SIMVASTATIN [Concomitant]
     Active Substance: SIMVASTATIN
     Indication: Blood cholesterol abnormal
  16. LORAZEPAM [Concomitant]
     Active Substance: LORAZEPAM
     Indication: Ill-defined disorder
     Dosage: 1 DOSAGE FORM, TID (ONE TO BE TAKEN THREE TIMES DAILY)
     Route: 065
     Dates: start: 20230911
  17. MEMANTINE [Concomitant]
     Active Substance: MEMANTINE
     Indication: Ill-defined disorder
     Dosage: 1 DOSAGE FORM, QD (TAKE ONE DAILY)
     Route: 065
     Dates: start: 20230911

REACTIONS (2)
  - Musculoskeletal stiffness [Not Recovered/Not Resolved]
  - Peripheral swelling [Not Recovered/Not Resolved]
